FAERS Safety Report 4506985-7 (Version None)
Quarter: 2004Q4

REPORT INFORMATION
  Report Type: 
  Country: None (occurrence: None)
  Receive Date: 20041117
  Receipt Date: 20041109
  Transmission Date: 20050328
  Serious: Yes (Life-Threatening)
  Sender: FDA-Public Use
  Company Number: 2004AP04615

PATIENT
  Age: 76 Year
  Sex: Female

DRUGS (9)
  1. SEROQUEL [Suspect]
     Indication: PARKINSON'S DISEASE
     Dosage: 25 MG DAILY PO
     Route: 048
     Dates: start: 20040823, end: 20040824
  2. SERENACE [Concomitant]
  3. ALFAROL [Concomitant]
  4. ASPRA-CA [Concomitant]
  5. LOXONIN [Concomitant]
  6. TERNELIN [Concomitant]
  7. TOUGHMAC E [Concomitant]
  8. DOPS [Concomitant]
  9. MENESIT [Concomitant]

REACTIONS (5)
  - BLOOD PRESSURE DECREASED [None]
  - BRADYCARDIA [None]
  - COLD SWEAT [None]
  - SHOCK [None]
  - UNRESPONSIVE TO VERBAL STIMULI [None]
